FAERS Safety Report 8894763 (Version 1)
Quarter: 2012Q4

REPORT INFORMATION
  Report Type: 
  Country: US (occurrence: US)
  Receive Date: 20121108
  Receipt Date: 20121108
  Transmission Date: 20130627
  Serious: No
  Sender: FDA-Public Use
  Company Number: US-ASTRAZENECA-2012SE81568

PATIENT
  Age: 54 Year
  Sex: Female
  Weight: 75.3 kg

DRUGS (11)
  1. NEXIUM [Suspect]
     Dosage: 1 CAPSULE. DAILY, BEFORE BREAKFAST FOR 90 DAYS
     Route: 048
  2. ZESTORETIC [Suspect]
     Dosage: 20+12.5 MG, 1 TABLET BY MOUTH, ONCE A DAY FOR 90 DAYS
     Route: 048
  3. CRESTOR [Suspect]
     Dosage: 1 TABLET BY MOUTH, QPM FOR 90 DAYS
     Route: 048
  4. CELEBREX [Concomitant]
     Dosage: 1 CAPSULE BY MOUTH, ONCE A DAY FOR 90 DAYS
     Route: 048
  5. PREMPRO [Concomitant]
     Dosage: 0.3-1.5 MG, 1 TABLET BY MOUTH, ONCE A DAY FOR 90 DAYS
     Route: 048
  6. FLEXERIL [Concomitant]
     Dosage: 1 TABLET BY MOUTH, ONCE PER DAY, AS NEEDED FOR 30 DAYS
     Route: 048
  7. LOPID [Concomitant]
     Dosage: 1 TABLET BY MOUTH, TWICE DAILY, BEFORE  MEALS
     Route: 048
  8. SYNTHROID [Concomitant]
     Dosage: 1 TABLET BY MOUTH, ONCE A DAY FOR 90 DAYS
     Route: 048
  9. GLUCOPHAGE [Concomitant]
     Dosage: 1 TABLET BY MOUTH, THREE TIMES A DAY WITH MEALS FOR 90 DAYS
     Route: 048
  10. AMBIEN [Concomitant]
     Dosage: 1 TABLET BY MOUTH EVERY NIGHT AS NEEDED FOR 30 DAYS
     Route: 048
  11. NORCO [Concomitant]
     Indication: PAIN
     Dosage: 7.5 - 325 MG, TAKE 1-2 TABLETS BY MOUTH, EVERY 8 HOURS AS NEEDED FOR 90 DAYS
     Route: 048

REACTIONS (2)
  - Diabetes mellitus [Unknown]
  - Hypertension [Unknown]
